FAERS Safety Report 16966183 (Version 3)
Quarter: 2019Q4

REPORT INFORMATION
  Report Type: Spontaneous
  Country: US (occurrence: US)
  Receive Date: 20191028
  Receipt Date: 20191205
  Transmission Date: 20200122
  Serious: No
  Sender: FDA-Public Use
  Company Number: US-PFIZER INC-2019463710

PATIENT
  Age: 20 Year
  Sex: Female
  Weight: 44.45 kg

DRUGS (2)
  1. ADVIL [Suspect]
     Active Substance: IBUPROFEN
     Indication: HEADACHE
     Dosage: 200 MG, UNK
  2. ADVIL [Suspect]
     Active Substance: IBUPROFEN
     Indication: BACK PAIN

REACTIONS (5)
  - Poor quality product administered [Unknown]
  - Product colour issue [Unknown]
  - Product container seal issue [Unknown]
  - Drug ineffective [Unknown]
  - Product physical issue [Unknown]
